FAERS Safety Report 17765898 (Version 1)
Quarter: 2020Q2

REPORT INFORMATION
  Report Type: Spontaneous
  Country: US (occurrence: US)
  Receive Date: 20200511
  Receipt Date: 20200511
  Transmission Date: 20200714
  Serious: Yes (Hospitalization)
  Sender: FDA-Public Use
  Company Number: None

PATIENT
  Age: 34 Year
  Sex: Male
  Weight: 63 kg

DRUGS (1)
  1. DIPHENHYDRAMINE (DIPHENHYDRAMINE HCL 25MG TAB) [Suspect]
     Active Substance: DIPHENHYDRAMINE HYDROCHLORIDE
     Indication: HYPERSENSITIVITY
     Route: 048
     Dates: start: 20200214, end: 20200215

REACTIONS (2)
  - Swelling face [None]
  - Skin tightness [None]

NARRATIVE: CASE EVENT DATE: 20191215
